FAERS Safety Report 4761860-8 (Version None)
Quarter: 2005Q3

REPORT INFORMATION
  Report Type: 
  Country: None (occurrence: None)
  Receive Date: 20050906
  Receipt Date: 20050414
  Transmission Date: 20060218
  Serious: Yes (Life-Threatening)
  Sender: FDA-Public Use
  Company Number: 200511182JP

PATIENT
  Age: 61 Year
  Sex: Female
  Weight: 48 kg

DRUGS (9)
  1. ALLEGRA [Suspect]
     Indication: RHINITIS ALLERGIC
     Route: 048
     Dates: start: 20050320, end: 20050411
  2. GLYBURIDE [Concomitant]
     Indication: DIABETES MELLITUS
     Route: 048
     Dates: start: 20031125, end: 20050413
  3. BASEN [Concomitant]
     Indication: DIABETES MELLITUS
     Route: 048
     Dates: start: 20031125, end: 20050413
  4. NORVASC [Concomitant]
     Indication: HYPERTENSION
     Route: 048
     Dates: start: 20031125
  5. ACECOL [Concomitant]
     Indication: HYPERTENSION
     Route: 048
     Dates: start: 20031125
  6. MEVALOTIN [Concomitant]
     Indication: HYPERLIPIDAEMIA
     Route: 048
     Dates: start: 20031125
  7. ALLELOCK [Concomitant]
     Indication: RHINITIS ALLERGIC
     Dates: start: 20040120, end: 20040226
  8. FLUNASE [Concomitant]
     Route: 055
  9. LIVOSTIN [Concomitant]
     Route: 047

REACTIONS (7)
  - ATRIOVENTRICULAR BLOCK SECOND DEGREE [None]
  - BRADYCARDIA [None]
  - CONDITION AGGRAVATED [None]
  - DIABETES MELLITUS [None]
  - DYSPNOEA [None]
  - PALPITATIONS [None]
  - VENTRICULAR EXTRASYSTOLES [None]
